FAERS Safety Report 7610300-X (Version None)
Quarter: 2011Q3

REPORT INFORMATION
  Report Type: 
  Country: None (occurrence: None)
  Receive Date: 20110706
  Receipt Date: 20110623
  Transmission Date: 20111222
  Serious: Yes (Other)
  Sender: FDA-Public Use
  Company Number: AUR-APL-2011-02476

PATIENT
  Age: 28 Year
  Sex: Male

DRUGS (7)
  1. HYOSCINE HBR HYT [Concomitant]
  2. ARIPIPRAZOLE [Concomitant]
  3. CLOZARIL [Concomitant]
  4. OMACOR [Concomitant]
  5. MIRTAZAPINE [Suspect]
     Indication: PRODUCT USED FOR UNKNOWN INDICATION
     Dates: end: 20110504
  6. VALPROATE SODIUM [Concomitant]
  7. CLONAZEPAM [Concomitant]

REACTIONS (2)
  - WHITE BLOOD CELL COUNT DECREASED [None]
  - NEUTROPENIA [None]
